FAERS Safety Report 9254186 (Version 1)
Quarter: 2013Q1

REPORT INFORMATION
  Report Type: Spontaneous
  Country: US (occurrence: None)
  Receive Date: 20121211
  Receipt Date: 20121211
  Transmission Date: 20140127
  Serious: Yes (Hospitalization)
  Sender: FDA-Public Use
  Company Number: 1204USA04336

PATIENT
  Age: 47 Year
  Sex: Male

DRUGS (2)
  1. ISENTRESS [Suspect]
     Dosage: ORAL
     Route: 048
  2. TRUVADA (EMTRICITABINE (+) TENOFOVIR DISOPROXIL FUMARATE) [Concomitant]

REACTIONS (1)
  - Neutropenia [None]
